FAERS Safety Report 15139763 (Version 1)
Quarter: 2018Q3

REPORT INFORMATION
  Report Type: Spontaneous
  Country: US (occurrence: US)
  Receive Date: 20180713
  Receipt Date: 20180713
  Transmission Date: 20181010
  Serious: Yes (Hospitalization, Other)
  Sender: FDA-Public Use
  Company Number: US-SA-2018SA181471

PATIENT
  Age: 66 Year
  Sex: Female
  Weight: 118 kg

DRUGS (6)
  1. DICLOFENAC SODIUM. [Suspect]
     Active Substance: DICLOFENAC SODIUM
     Dosage: 75 MG, PRN
     Route: 048
     Dates: start: 2014, end: 20171222
  2. SIMVASTATIN. [Concomitant]
     Active Substance: SIMVASTATIN
     Dosage: UNK
     Dates: start: 2011
  3. TROLAMINE SALICYLATE. [Concomitant]
     Active Substance: TROLAMINE SALICYLATE
     Dosage: UNK
     Dates: start: 2013
  4. PLAVIX [Suspect]
     Active Substance: CLOPIDOGREL BISULFATE
  5. LOSARTAN AND HYDROCHLOROTHIAZIDE [Suspect]
     Active Substance: HYDROCHLOROTHIAZIDE\LOSARTAN POTASSIUM
     Indication: HYPERTENSION
     Dosage: UNK
     Dates: start: 2011
  6. ACETYLSALICYLIC ACID [Concomitant]
     Active Substance: ASPIRIN
     Dosage: UNK
     Dates: start: 2011

REACTIONS (3)
  - Dehydration [Unknown]
  - Acute kidney injury [Unknown]
  - Anaemia [Unknown]
